FAERS Safety Report 4331607-8 (Version None)
Quarter: 2004Q2

REPORT INFORMATION
  Report Type: 
  Country: None (occurrence: None)
  Receive Date: 20040405
  Receipt Date: 20040304
  Transmission Date: 20050107
  Serious: Yes (Death)
  Sender: FDA-Public Use
  Company Number: JP-MERCK-0403USA00689

PATIENT
  Age: 55 Year
  Sex: Male

DRUGS (4)
  1. AMPICILLIN SODIUM AND SULBACTAM SODIUM [Concomitant]
     Route: 065
     Dates: start: 20020830, end: 20020909
  2. PRIMAXIN [Suspect]
     Indication: BRAIN ABSCESS
     Route: 051
     Dates: start: 20020910, end: 20020927
  3. FLOMOXEF [Concomitant]
     Route: 065
     Dates: start: 20020910, end: 20020919
  4. GLOBULIN, IMMUNE [Concomitant]
     Route: 065
     Dates: start: 20020101

REACTIONS (12)
  - BRAIN ABSCESS [None]
  - BRAIN OEDEMA [None]
  - CEREBROVASCULAR DISORDER [None]
  - DISEASE RECURRENCE [None]
  - HEMIPARESIS [None]
  - INFECTION [None]
  - LIGHT CHAIN ANALYSIS INCREASED [None]
  - MONOCLONAL IMMUNOGLOBULIN PRESENT [None]
  - MULTIPLE MYELOMA [None]
  - NASOPHARYNGITIS [None]
  - PNEUMONIA [None]
  - VENOUS OCCLUSION [None]
